FAERS Safety Report 13878866 (Version 1)
Quarter: 2017Q3

REPORT INFORMATION
  Report Type: Spontaneous
  Country: US (occurrence: US)
  Receive Date: 20170817
  Receipt Date: 20170817
  Transmission Date: 20171127
  Serious: No
  Sender: FDA-Public Use
  Company Number: US-TAKEDA-2017TUS017036

PATIENT
  Sex: Female
  Weight: 45.35 kg

DRUGS (13)
  1. FEXOFENADINE [Concomitant]
     Active Substance: FEXOFENADINE\FEXOFENADINE HYDROCHLORIDE
     Indication: MULTIPLE ALLERGIES
     Dosage: UNK
     Route: 048
  2. PROPRANOLOL [Concomitant]
     Active Substance: PROPRANOLOL HYDROCHLORIDE
     Indication: TREMOR
     Dosage: 10 MG, UNK
     Route: 048
  3. DEXILANT [Suspect]
     Active Substance: DEXLANSOPRAZOLE
     Dosage: 120 MG, QD
     Route: 048
  4. OMEGA 3                            /01333901/ [Concomitant]
     Active Substance: FISH OIL\TOCOPHEROL
     Indication: NUTRITIONAL SUPPLEMENTATION
     Dosage: UNK
     Route: 048
  5. VITAMIN D                          /00107901/ [Concomitant]
     Active Substance: ERGOCALCIFEROL
     Indication: VITAMIN SUPPLEMENTATION
     Dosage: UNK
     Route: 048
  6. BABY ASPIRIN [Concomitant]
     Active Substance: ASPIRIN
     Indication: PROPHYLAXIS
     Dosage: 81 MG, UNK
     Route: 048
  7. DEXILANT [Suspect]
     Active Substance: DEXLANSOPRAZOLE
     Dosage: 180 MG, QD
     Route: 048
  8. DEXILANT [Suspect]
     Active Substance: DEXLANSOPRAZOLE
     Dosage: 240 MG, QD
     Route: 048
     Dates: end: 201706
  9. DEXILANT [Suspect]
     Active Substance: DEXLANSOPRAZOLE
     Dosage: 120 MG, QD
     Route: 048
     Dates: start: 201706
  10. DEXILANT [Suspect]
     Active Substance: DEXLANSOPRAZOLE
     Indication: GASTROOESOPHAGEAL REFLUX DISEASE
     Dosage: 60 MG, QD
     Route: 048
     Dates: start: 2015
  11. CETRIZINE [Concomitant]
     Active Substance: CETIRIZINE HYDROCHLORIDE
     Indication: MULTIPLE ALLERGIES
     Dosage: UNK
     Route: 048
  12. MVI                                /01825701/ [Concomitant]
     Active Substance: VITAMINS
     Indication: VITAMIN SUPPLEMENTATION
     Dosage: UNK
     Route: 048
  13. TOPIRAMATE. [Concomitant]
     Active Substance: TOPIRAMATE
     Indication: MIGRAINE
     Dosage: 200 MG, UNK
     Route: 048

REACTIONS (3)
  - No adverse event [Unknown]
  - Overdose [Unknown]
  - Incorrect dose administered [Unknown]
